FAERS Safety Report 4469564-6 (Version None)
Quarter: 2004Q4

REPORT INFORMATION
  Report Type: 
  Country: None (occurrence: None)
  Receive Date: 20041008
  Receipt Date: 20040929
  Transmission Date: 20050328
  Serious: Yes (Hospitalization)
  Sender: FDA-Public Use
  Company Number: FR-BRISTOL-MYERS SQUIBB COMPANY-12724332

PATIENT
  Age: 31 Year
  Sex: Female

DRUGS (10)
  1. ENDOXAN [Suspect]
     Indication: BREAST CANCER
     Dosage: THERAPY DATES: 19-APR-2004 TO 10-MAY-2004
     Route: 042
     Dates: start: 20040510, end: 20040510
  2. FARMORUBICIN [Suspect]
     Indication: BREAST CANCER
     Dosage: THERAPY DATES: 19-APR-2004 TO 10-MAY-2004
     Route: 042
     Dates: start: 20040510, end: 20040510
  3. FLUOROURACIL [Suspect]
     Indication: BREAST CANCER
     Dosage: THERAPY DATES: 19-APR-2004 TO 10-MAY-2004
     Route: 042
     Dates: start: 20040510, end: 20040510
  4. RULID [Suspect]
     Indication: PYREXIA
     Route: 048
     Dates: start: 20040519, end: 20040525
  5. AERIUS [Suspect]
     Indication: COUGH
     Route: 048
     Dates: start: 20040517, end: 20040525
  6. POLERY [Suspect]
     Indication: COUGH
     Route: 048
     Dates: start: 20040517, end: 20040525
  7. DOLIPRANE [Suspect]
     Indication: PYREXIA
     Route: 048
     Dates: start: 20040519, end: 20040525
  8. ZOPHREN [Concomitant]
     Indication: PREMEDICATION
     Dosage: 8 MG ON 11-MAY-2004
     Dates: start: 20040401
  9. SOLU-MEDROL [Concomitant]
     Indication: PREMEDICATION
     Dosage: 20 MG FROM 11-MAY-2004 TO 13-MAY-2004
     Dates: start: 20040419, end: 20040510
  10. SOLUPRED [Concomitant]
     Dates: start: 20040511, end: 20040513

REACTIONS (2)
  - CYTOLYTIC HEPATITIS [None]
  - NEUTROPENIA [None]
